FAERS Safety Report 16489896 (Version 2)
Quarter: 2019Q3

REPORT INFORMATION
  Report Type: Report from Study
  Country: KR (occurrence: KR)
  Receive Date: 20190628
  Receipt Date: 20190705
  Transmission Date: 20191004
  Serious: No
  Sender: FDA-Public Use
  Company Number: KR-B.I. PHARMACEUTICALS,INC./RIDGEFIELD-2019-BI-027523

PATIENT
  Age: 104 Year
  Sex: Male
  Weight: 47.9 kg

DRUGS (12)
  1. KEPPRA [Concomitant]
     Active Substance: LEVETIRACETAM
     Indication: BRAIN NEOPLASM
     Dosage: DAILY DOSE: 1 TAB
     Route: 065
     Dates: start: 20181004
  2. PROSCAR [Concomitant]
     Active Substance: FINASTERIDE
     Indication: BENIGN PROSTATIC HYPERPLASIA
     Dosage: DAILY DOSE: 1 TAB
     Route: 065
     Dates: start: 20181005, end: 20181112
  3. GILOTRIF [Suspect]
     Active Substance: AFATINIB
     Indication: NON-SMALL CELL LUNG CANCER
     Route: 048
     Dates: start: 20181023, end: 20181110
  4. GILOTRIF [Suspect]
     Active Substance: AFATINIB
     Route: 048
     Dates: start: 20181113, end: 20181130
  5. GILOTRIF [Suspect]
     Active Substance: AFATINIB
     Route: 048
     Dates: end: 20190208
  6. AUGMENTIN [Concomitant]
     Active Substance: AMOXICILLIN\CLAVULANATE POTASSIUM
     Indication: PYREXIA
     Route: 065
     Dates: start: 20181101, end: 20181112
  7. LANSTON [Concomitant]
     Active Substance: LANSOPRAZOLE
     Indication: DYSPEPSIA
  8. LOPAINE [Concomitant]
     Indication: DIARRHOEA
     Dosage: DAILY DOSE: 3 CAP
     Route: 065
     Dates: start: 20181025
  9. XATRAL [Concomitant]
     Active Substance: ALFUZOSIN
     Indication: BENIGN PROSTATIC HYPERPLASIA
     Dosage: DAILY DOSE: 1 TAB
     Route: 065
     Dates: start: 20181005, end: 20181112
  10. SOLONDO [Concomitant]
     Active Substance: PREDNISOLONE
     Indication: BRAIN NEOPLASM
     Dosage: DAILY DOSE: 2 TAB
     Route: 065
     Dates: start: 20181015, end: 20181030
  11. LANSTON [Concomitant]
     Active Substance: LANSOPRAZOLE
     Indication: PROPHYLAXIS
     Dosage: DAILY DOSE: 1 TAB
     Route: 065
     Dates: start: 20181005
  12. RINO EBASTEL [Concomitant]
     Active Substance: EBASTINE\PSEUDOEPHEDRINE HYDROCHLORIDE
     Indication: RHINORRHOEA
     Route: 065
     Dates: start: 20181101, end: 20181112

REACTIONS (4)
  - Decreased appetite [Not Recovered/Not Resolved]
  - Hypophagia [Recovered/Resolved]
  - Diarrhoea [Not Recovered/Not Resolved]
  - Stomatitis [Not Recovered/Not Resolved]

NARRATIVE: CASE EVENT DATE: 20181102
